FAERS Safety Report 24415746 (Version 1)
Quarter: 2024Q4

REPORT INFORMATION
  Report Type: Spontaneous
  Country: US (occurrence: US)
  Receive Date: 20241009
  Receipt Date: 20241009
  Transmission Date: 20250115
  Serious: Yes (Hospitalization, Other)
  Sender: ZYDUS PHARM
  Company Number: US-CADILA HEALTHCARE LIMITED-US-ZYDUS-112945

PATIENT

DRUGS (2)
  1. BACLOFEN [Suspect]
     Active Substance: BACLOFEN
     Indication: Multiple sclerosis
     Dosage: UNK, BACLOFEN PUMP
     Route: 037
  2. BACLOFEN [Suspect]
     Active Substance: BACLOFEN
     Dosage: UNK
     Route: 048

REACTIONS (11)
  - Cardiac arrest [Unknown]
  - Electrocardiogram QT prolonged [Recovered/Resolved]
  - Hypertension [Unknown]
  - Mental status changes [Unknown]
  - Respiratory acidosis [Unknown]
  - Tachycardia [Unknown]
  - Tachypnoea [Unknown]
  - Toxicity to various agents [Unknown]
  - Overdose [Unknown]
  - Product dispensing error [Unknown]
  - Device malfunction [Unknown]
